FAERS Safety Report 15313354 (Version 2)
Quarter: 2018Q3

REPORT INFORMATION
  Report Type: Spontaneous
  Country: US (occurrence: US)
  Receive Date: 20180823
  Receipt Date: 20180909
  Transmission Date: 20181010
  Serious: No
  Sender: FDA-Public Use
  Company Number: US-JNJFOC-20180736652

PATIENT
  Age: 71 Year
  Sex: Female

DRUGS (1)
  1. TYLENOL EXTRA STRENGTH [Suspect]
     Active Substance: ACETAMINOPHEN
     Indication: HEADACHE
     Dosage: CONSUMER DIDN^T TAKE THE PRODUCT
     Route: 065

REACTIONS (2)
  - Laceration [Recovered/Resolved]
  - Product outer packaging issue [Unknown]

NARRATIVE: CASE EVENT DATE: 20180726
